FAERS Safety Report 5049116-X (Version None)
Quarter: 2006Q3

REPORT INFORMATION
  Report Type: 
  Country: None (occurrence: None)
  Receive Date: 20060706
  Receipt Date: 20060627
  Transmission Date: 20061208
  Serious: Yes (Hospitalization, Other)
  Sender: FDA-Public Use
  Company Number: 2006071147

PATIENT
  Age: 28 Year
  Sex: Female

DRUGS (3)
  1. DEPO-PROVERA SUSPENSION/INJ [Suspect]
     Indication: CONTRACEPTION
     Dosage: SEE IMAGE
     Route: 030
     Dates: start: 20031001, end: 20031001
  2. DEPO-PROVERA SUSPENSION/INJ [Suspect]
     Indication: CONTRACEPTION
     Dosage: SEE IMAGE
     Route: 030
     Dates: start: 20060522, end: 20060522
  3. ANALGESICS (ANALGESICS) [Suspect]
     Indication: PAIN
     Dates: start: 20060501, end: 20060601

REACTIONS (13)
  - ABDOMINAL PAIN [None]
  - AMENORRHOEA [None]
  - APPENDICITIS [None]
  - DYSGEUSIA [None]
  - ENDOMETRIOSIS [None]
  - HEADACHE [None]
  - HEPATITIS [None]
  - MENSTRUAL DISORDER [None]
  - MENSTRUATION IRREGULAR [None]
  - PAIN IN EXTREMITY [None]
  - THROMBOSIS [None]
  - UTERINE DISORDER [None]
  - VAGINAL HAEMORRHAGE [None]
